FAERS Safety Report 14946226 (Version 1)
Quarter: 2018Q2

REPORT INFORMATION
  Report Type: Spontaneous
  Country: US (occurrence: US)
  Receive Date: 20180529
  Receipt Date: 20180529
  Transmission Date: 20180711
  Serious: Yes (Other)
  Sender: FDA-Public Use
  Company Number: US-SA-2017SA265748

PATIENT
  Age: 59 Year
  Sex: Female
  Weight: 83.91 kg

DRUGS (4)
  1. ADRIAMYCIN CS [Concomitant]
  2. DOCETAXEL. [Suspect]
     Active Substance: DOCETAXEL
     Dosage: EVERY OTHER WEEK
     Route: 051
     Dates: start: 20111228, end: 20111228
  3. NEOSAR [Concomitant]
     Active Substance: CYCLOPHOSPHAMIDE
  4. DOCETAXEL. [Suspect]
     Active Substance: DOCETAXEL
     Indication: BREAST CANCER
     Dosage: EVERY TWO WEEKS
     Route: 051
     Dates: start: 20110918, end: 20110918

REACTIONS (1)
  - Alopecia [Recovering/Resolving]

NARRATIVE: CASE EVENT DATE: 201109
